FAERS Safety Report 7449829-6 (Version None)
Quarter: 2011Q2

REPORT INFORMATION
  Report Type: 
  Country: None (occurrence: None)
  Receive Date: 20110502
  Receipt Date: 20110421
  Transmission Date: 20111010
  Serious: Yes (Other)
  Sender: FDA-Public Use
  Company Number: US-JNJFOC-20110406177

PATIENT
  Sex: Female
  Weight: 80.29 kg

DRUGS (23)
  1. DURAGESIC [Suspect]
     Indication: PRODUCT USED FOR UNKNOWN INDICATION
     Route: 062
  2. FENTANYL-100 [Suspect]
     Route: 062
  3. HORMONE REPLACEMENT THERAPY PATCH, NOS [Concomitant]
     Indication: HORMONE REPLACEMENT THERAPY
     Route: 062
  4. SYNTHROID [Concomitant]
     Indication: THYROID DISORDER
     Route: 048
  5. METFORMIN HCL [Concomitant]
     Indication: DIABETES MELLITUS
     Route: 048
  6. OMEPRAZOLE [Concomitant]
     Indication: GASTROOESOPHAGEAL REFLUX DISEASE
     Route: 048
  7. FENTANYL-100 [Suspect]
     Indication: PAIN IN EXTREMITY
     Route: 062
  8. FENTANYL-100 [Suspect]
     Route: 062
  9. FENTANYL CITRATE [Suspect]
     Indication: FIBROMYALGIA
     Route: 062
  10. OXYCODONE [Suspect]
     Indication: PAIN IN EXTREMITY
     Route: 048
  11. OXYCODONE [Suspect]
     Indication: BACK PAIN
     Route: 048
  12. ACTOS [Concomitant]
     Indication: DIABETES MELLITUS
     Route: 048
  13. FENTANYL-100 [Suspect]
     Indication: BACK PAIN
     Route: 062
  14. FENTANYL-100 [Suspect]
     Indication: FIBROMYALGIA
     Route: 062
  15. HYDROCODONE BITARTRATE [Concomitant]
     Indication: BREAKTHROUGH PAIN
     Route: 048
  16. SIMVASTATIN [Concomitant]
     Indication: BLOOD CHOLESTEROL
     Route: 048
  17. FENTANYL CITRATE [Suspect]
     Indication: PAIN IN EXTREMITY
     Route: 062
  18. OXYCODONE [Suspect]
     Indication: FIBROMYALGIA
     Route: 048
  19. FENTANYL-100 [Suspect]
     Route: 062
  20. FENTANYL CITRATE [Suspect]
     Indication: BACK PAIN
     Route: 062
  21. LYRICA [Concomitant]
     Indication: FIBROMYALGIA
     Route: 048
  22. SAVELLA [Concomitant]
     Indication: FIBROMYALGIA
     Route: 048
  23. KLONOPIN [Concomitant]
     Indication: ANXIETY
     Route: 048

REACTIONS (5)
  - FEELING ABNORMAL [None]
  - DIABETIC NEUROPATHY [None]
  - JOINT EFFUSION [None]
  - ADVERSE DRUG REACTION [None]
  - NERVE COMPRESSION [None]
